FAERS Safety Report 25579080 (Version 1)
Quarter: 2025Q3

REPORT INFORMATION
  Report Type: Spontaneous
  Country: US (occurrence: US)
  Receive Date: 20250718
  Receipt Date: 20250718
  Transmission Date: 20251021
  Serious: Yes (Other)
  Sender: SAMSUNG BIOEPIS
  Company Number: US-SAMSUNG BIOEPIS-SB-2025-24049

PATIENT
  Age: 24 Year
  Sex: Male

DRUGS (12)
  1. ADALIMUMAB [Suspect]
     Active Substance: ADALIMUMAB
     Indication: IRVAN syndrome
  2. INFLIXIMAB [Suspect]
     Active Substance: INFLIXIMAB
     Indication: IRVAN syndrome
  3. PREDNISONE [Suspect]
     Active Substance: PREDNISONE
     Indication: IRVAN syndrome
     Route: 048
  4. PREDNISONE [Suspect]
     Active Substance: PREDNISONE
  5. ASPIRIN [Suspect]
     Active Substance: ASPIRIN
     Indication: IRVAN syndrome
  6. RITUXIMAB [Suspect]
     Active Substance: RITUXIMAB
     Indication: IRVAN syndrome
  7. MYCOPHENOLATE MOFETIL [Suspect]
     Active Substance: MYCOPHENOLATE MOFETIL
     Indication: IRVAN syndrome
  8. MYCOPHENOLATE MOFETIL [Suspect]
     Active Substance: MYCOPHENOLATE MOFETIL
  9. TRIAMCINOLONE [Concomitant]
     Active Substance: TRIAMCINOLONE
     Indication: IRVAN syndrome
  10. TRIAMCINOLONE [Concomitant]
     Active Substance: TRIAMCINOLONE
  11. BEVACIZUMAB [Concomitant]
     Active Substance: BEVACIZUMAB
     Indication: IRVAN syndrome
  12. BEVACIZUMAB [Concomitant]
     Active Substance: BEVACIZUMAB

REACTIONS (6)
  - Vitreous haemorrhage [Recovered/Resolved]
  - Disease progression [Unknown]
  - Neovascularisation [Recovered/Resolved]
  - Drug ineffective for unapproved indication [Unknown]
  - Drug effective for unapproved indication [Unknown]
  - Off label use [Unknown]
